FAERS Safety Report 23532942 (Version 1)
Quarter: 2024Q1

REPORT INFORMATION
  Report Type: Spontaneous
  Country: US (occurrence: US)
  Receive Date: 20240216
  Receipt Date: 20240216
  Transmission Date: 20240409
  Serious: No
  Sender: FDA-Public Use
  Company Number: US-JUBILANT CADISTA PHARMACEUTICALS-2023US001719

PATIENT
  Age: 72 Year
  Sex: Female

DRUGS (1)
  1. VALSARTAN [Suspect]
     Active Substance: VALSARTAN
     Indication: Product used for unknown indication
     Dosage: UNK, 2 TIMES PER DAY
     Route: 065

REACTIONS (5)
  - Illness [Unknown]
  - Stress [Unknown]
  - Insomnia [Unknown]
  - Fatigue [Unknown]
  - Unevaluable event [Unknown]
